FAERS Safety Report 4589476-7 (Version None)
Quarter: 2005Q1

REPORT INFORMATION
  Report Type: 
  Country: None (occurrence: None)
  Receive Date: 20050216
  Receipt Date: 20050207
  Transmission Date: 20050727
  Serious: No
  Sender: FDA-Public Use
  Company Number: 209483

PATIENT
  Age: 67 Year
  Sex: Male
  Weight: 78.5 kg

DRUGS (4)
  1. OMALIZUMAB (OMALIZUMAB) PWDR + SOLVENT, INJECTION SOLN, 150MG [Suspect]
     Indication: ASTHMA
     Dosage: 150 MG, 1/MONTH
     Dates: start: 20040607
  2. ADVAIR (FLUTICASONE PROPIONATE, SALMETEROL XINAFOATE) [Concomitant]
  3. SINGULAIR [Concomitant]
  4. FLONASE [Concomitant]

REACTIONS (8)
  - AORTIC DILATATION [None]
  - EMBOLISM [None]
  - HYPERTENSIVE HEART DISEASE [None]
  - RETINAL ARTERY OCCLUSION [None]
  - RETINAL DISORDER [None]
  - RETINAL OEDEMA [None]
  - RETINAL VEIN OCCLUSION [None]
  - VISUAL DISTURBANCE [None]
